FAERS Safety Report 4596218-8 (Version None)
Quarter: 2005Q1

REPORT INFORMATION
  Report Type: 
  Country: None (occurrence: None)
  Receive Date: 20050225
  Receipt Date: 20050218
  Transmission Date: 20050727
  Serious: Yes (Hospitalization)
  Sender: FDA-Public Use
  Company Number: 2005PK00286

PATIENT
  Age: 72 Year
  Sex: Female

DRUGS (7)
  1. SEROQUEL [Suspect]
     Dosage: 250 MG DAILY
     Dates: end: 20010101
  2. SEROQUEL [Suspect]
     Dosage: 125 MG DAILY PO
     Route: 048
     Dates: start: 20040210, end: 20040223
  3. STANGYL [Suspect]
     Dates: end: 20010101
  4. STANGYL [Suspect]
     Dates: start: 20040201, end: 20040212
  5. STANGYL [Suspect]
     Dosage: 175 MG DAILY
     Dates: start: 20040213
  6. TAVOR [Suspect]
     Dosage: 2 MG DAILY
     Dates: start: 20040129
  7. TREVILOR [Concomitant]

REACTIONS (2)
  - DRUG INTERACTION [None]
  - MICTURITION DISORDER [None]
